FAERS Safety Report 6752640-2 (Version None)
Quarter: 2010Q2

REPORT INFORMATION
  Report Type: 
  Country: None (occurrence: None)
  Receive Date: 20100601
  Receipt Date: 20100601
  Transmission Date: 20101027
  Serious: Yes (Hospitalization)
  Sender: FDA-Public Use
  Company Number: None

PATIENT
  Sex: Female
  Weight: 93 kg

DRUGS (12)
  1. VANCOMYCIN [Suspect]
     Indication: CELLULITIS
     Dosage: 1000 MG EVERY 12 HOURS IV
     Route: 042
     Dates: start: 20100519, end: 20100523
  2. ACETAMINOPHEN [Concomitant]
  3. CEFTRIAXONE [Concomitant]
  4. CLINDAMYCIN [Concomitant]
  5. DOBUTAMINE DRIP [Concomitant]
  6. ENALAPRILAT [Concomitant]
  7. FUROSEMIDE [Concomitant]
  8. KETOROLAC TROMETHAMINE [Concomitant]
  9. METFORMIN HCL [Concomitant]
  10. PANTOPRAZOLE [Concomitant]
  11. PAROXETINE HCL [Concomitant]
  12. SPIRONOLACTONE [Concomitant]

REACTIONS (3)
  - BLOOD CREATINE INCREASED [None]
  - HAEMODIALYSIS [None]
  - LABORATORY TEST ABNORMAL [None]
